FAERS Safety Report 8377794-6 (Version None)
Quarter: 2012Q2

REPORT INFORMATION
  Report Type: 
  Country: None (occurrence: None)
  Receive Date: 20120521
  Receipt Date: 20120508
  Transmission Date: 20120825
  Serious: Yes (Hospitalization, Other)
  Sender: FDA-Public Use
  Company Number: ADR-2011-10170

PATIENT
  Age: 19 Year
  Sex: Male

DRUGS (2)
  1. BACLOFEN [Suspect]
     Indication: DYSTONIA
     Dosage: SEE B5
  2. BACLOFEN [Suspect]
     Indication: QUADRIPLEGIA
     Dosage: SEE B5

REACTIONS (12)
  - PROCEDURAL SITE REACTION [None]
  - POST PROCEDURAL HAEMORRHAGE [None]
  - NAUSEA [None]
  - PAIN [None]
  - EMOTIONAL DISORDER [None]
  - DERMATITIS [None]
  - OESOPHAGEAL OBSTRUCTION [None]
  - FISTULA DISCHARGE [None]
  - VOMITING [None]
  - HYPERTONIA [None]
  - ANURIA [None]
  - MUSCLE TIGHTNESS [None]
